FAERS Safety Report 5843931-8 (Version None)
Quarter: 2008Q3

REPORT INFORMATION
  Report Type: 
  Country: None (occurrence: None)
  Receive Date: 20080813
  Receipt Date: 20080804
  Transmission Date: 20090109
  Serious: Yes (Other)
  Sender: FDA-Public Use
  Company Number: BR-ROCHE-579984

PATIENT
  Age: 32 Year
  Sex: Male
  Weight: 87 kg

DRUGS (1)
  1. ROACUTAN [Suspect]
     Indication: OILY SKIN
     Route: 048
     Dates: start: 20061101, end: 20070201

REACTIONS (3)
  - CHONDROPATHY [None]
  - HYPERTHYROIDISM [None]
  - LIGAMENT DISORDER [None]
